FAERS Safety Report 15281877 (Version 2)
Quarter: 2019Q1

REPORT INFORMATION
  Report Type: Spontaneous
  Country: AT (occurrence: AT)
  Receive Date: 20180815
  Receipt Date: 20190206
  Transmission Date: 20190417
  Serious: Yes (Hospitalization)
  Sender: FDA-Public Use
  Company Number: AT-BAUSCH-BL-2018-021703

PATIENT
  Age: 73 Year
  Sex: Male
  Weight: 93.8 kg

DRUGS (4)
  1. DEXAMETHASONE. [Suspect]
     Active Substance: DEXAMETHASONE
     Indication: PLASMA CELL MYELOMA
     Dosage: WEEKLY
     Route: 048
     Dates: start: 20160908, end: 20170314
  2. REVLIMID [Suspect]
     Active Substance: LENALIDOMIDE
     Indication: PLASMA CELL MYELOMA
     Dosage: 18.75 MILLIGRAM, THREE WEEKS
     Route: 048
     Dates: start: 20160908, end: 20170314
  3. AQUAPHORIL [Concomitant]
     Active Substance: XIPAMIDE
     Indication: HYPERTENSION
     Dosage: 40 MILLIGRAM; ONE WEEK
     Route: 048
     Dates: start: 20160824
  4. CAL D VITA [Concomitant]
     Indication: OSTEOPOROSIS PROPHYLAXIS
     Route: 048
     Dates: start: 20160908

REACTIONS (3)
  - Pneumonia [Recovered/Resolved]
  - Lymphopenia [Recovered/Resolved]
  - Thrombocytopenia [Recovering/Resolving]

NARRATIVE: CASE EVENT DATE: 20160929
